FAERS Safety Report 15370218 (Version 1)
Quarter: 2018Q3

REPORT INFORMATION
  Report Type: Spontaneous
  Country: FR (occurrence: FR)
  Receive Date: 20180911
  Receipt Date: 20180911
  Transmission Date: 20181010
  Serious: Yes (Hospitalization, Other)
  Sender: FDA-Public Use
  Company Number: FR-AUROBINDO-AUR-APL-2018-045110

PATIENT
  Age: 22 Year
  Sex: Male

DRUGS (7)
  1. PARACETAMOL [Suspect]
     Active Substance: ACETAMINOPHEN
     Indication: PAIN
     Dosage: 3 GRAM, DAILY, IF NECESSARY
     Route: 048
     Dates: start: 20180801
  2. SERETIDE [Suspect]
     Active Substance: FLUTICASONE PROPIONATE\SALMETEROL XINAFOATE
     Indication: ASTHMA
     Dosage: 1 DOSAGE FORM, DAILY
     Route: 055
     Dates: start: 2015
  3. CELESTENE                          /00008502/ [Suspect]
     Active Substance: BETAMETHASONE SODIUM PHOSPHATE
     Indication: TOOTH EXTRACTION
     Dosage: 6 MILLIGRAM, DAILY
     Route: 048
     Dates: start: 20180801, end: 20180803
  4. AMOXICILLIN. [Suspect]
     Active Substance: AMOXICILLIN
     Indication: TOOTH EXTRACTION
     Dosage: 2 GRAM, DAILY
     Route: 048
     Dates: start: 20180801, end: 20180807
  5. BILASKA [Suspect]
     Active Substance: BILASTINE
     Indication: HYPERSENSITIVITY
     Dosage: 1 DOSAGE FORM, DAILY
     Route: 048
     Dates: start: 2015
  6. VENTOLINE                          /00139502/ [Suspect]
     Active Substance: ALBUTEROL SULFATE
     Indication: ASTHMA
     Dosage: IF NECESSARY
     Route: 055
     Dates: start: 2015
  7. SINGULAIR [Suspect]
     Active Substance: MONTELUKAST SODIUM
     Indication: ASTHMA
     Dosage: 10 MILLIGRAM, (10 MG IN THE EVENING)
     Route: 055
     Dates: start: 2015, end: 20180809

REACTIONS (1)
  - Pancreatitis [Recovering/Resolving]

NARRATIVE: CASE EVENT DATE: 20180809
